FAERS Safety Report 12791634 (Version 2)
Quarter: 2017Q2

REPORT INFORMATION
  Report Type: Report from Study
  Country: US (occurrence: US)
  Receive Date: 20160929
  Receipt Date: 20170505
  Transmission Date: 20170830
  Serious: Yes (Other)
  Sender: FDA-Public Use
  Company Number: US-ROCHE-1834918

PATIENT
  Age: 39 Year
  Sex: Female

DRUGS (115)
  1. BEVACIZUMAB [Suspect]
     Active Substance: BEVACIZUMAB
     Route: 042
     Dates: start: 20120110
  2. BEVACIZUMAB [Suspect]
     Active Substance: BEVACIZUMAB
     Route: 042
     Dates: start: 20120313
  3. BEVACIZUMAB [Suspect]
     Active Substance: BEVACIZUMAB
     Route: 042
     Dates: start: 20120501
  4. BEVACIZUMAB [Suspect]
     Active Substance: BEVACIZUMAB
     Route: 042
     Dates: start: 20121106
  5. BEVACIZUMAB [Suspect]
     Active Substance: BEVACIZUMAB
     Route: 042
     Dates: start: 20130528
  6. BEVACIZUMAB [Suspect]
     Active Substance: BEVACIZUMAB
     Route: 042
     Dates: start: 20130716
  7. BEVACIZUMAB [Suspect]
     Active Substance: BEVACIZUMAB
     Route: 042
     Dates: start: 20140214
  8. BEVACIZUMAB [Suspect]
     Active Substance: BEVACIZUMAB
     Route: 042
     Dates: start: 20140529
  9. BEVACIZUMAB [Suspect]
     Active Substance: BEVACIZUMAB
     Route: 042
     Dates: start: 20140925
  10. BEVACIZUMAB [Suspect]
     Active Substance: BEVACIZUMAB
     Route: 042
     Dates: start: 20141212
  11. IXABEPILONE [Suspect]
     Active Substance: IXABEPILONE
     Route: 042
     Dates: start: 20120110
  12. IXABEPILONE [Suspect]
     Active Substance: IXABEPILONE
     Route: 042
     Dates: start: 20120411
  13. IXABEPILONE [Suspect]
     Active Substance: IXABEPILONE
     Route: 042
     Dates: start: 20120628
  14. IXABEPILONE [Suspect]
     Active Substance: IXABEPILONE
     Route: 042
     Dates: start: 20130905
  15. IXABEPILONE [Suspect]
     Active Substance: IXABEPILONE
     Route: 042
     Dates: start: 20140327
  16. IXABEPILONE [Suspect]
     Active Substance: IXABEPILONE
     Route: 042
     Dates: start: 20140828
  17. IXABEPILONE [Suspect]
     Active Substance: IXABEPILONE
     Route: 042
     Dates: start: 20150105
  18. BEVACIZUMAB [Suspect]
     Active Substance: BEVACIZUMAB
     Route: 042
     Dates: start: 20111121
  19. BEVACIZUMAB [Suspect]
     Active Substance: BEVACIZUMAB
     Route: 042
     Dates: start: 20120628
  20. BEVACIZUMAB [Suspect]
     Active Substance: BEVACIZUMAB
     Route: 042
     Dates: start: 20120904
  21. BEVACIZUMAB [Suspect]
     Active Substance: BEVACIZUMAB
     Route: 042
     Dates: start: 20130625
  22. BEVACIZUMAB [Suspect]
     Active Substance: BEVACIZUMAB
     Route: 042
     Dates: start: 20140508
  23. BEVACIZUMAB [Suspect]
     Active Substance: BEVACIZUMAB
     Route: 042
     Dates: start: 20140807
  24. BEVACIZUMAB [Suspect]
     Active Substance: BEVACIZUMAB
     Route: 042
     Dates: start: 20150105
  25. BEVACIZUMAB [Suspect]
     Active Substance: BEVACIZUMAB
     Route: 042
     Dates: start: 20150220
  26. BEVACIZUMAB [Suspect]
     Active Substance: BEVACIZUMAB
     Route: 042
     Dates: start: 20150522, end: 20150522
  27. IXABEPILONE [Suspect]
     Active Substance: IXABEPILONE
     Route: 042
     Dates: start: 20111213
  28. IXABEPILONE [Suspect]
     Active Substance: IXABEPILONE
     Route: 042
     Dates: start: 20120501
  29. IXABEPILONE [Suspect]
     Active Substance: IXABEPILONE
     Route: 042
     Dates: start: 20120724
  30. IXABEPILONE [Suspect]
     Active Substance: IXABEPILONE
     Route: 042
     Dates: start: 20121016
  31. IXABEPILONE [Suspect]
     Active Substance: IXABEPILONE
     Route: 042
     Dates: start: 20130207
  32. IXABEPILONE [Suspect]
     Active Substance: IXABEPILONE
     Route: 042
     Dates: start: 20130625
  33. IXABEPILONE [Suspect]
     Active Substance: IXABEPILONE
     Route: 042
     Dates: start: 20130716
  34. IXABEPILONE [Suspect]
     Active Substance: IXABEPILONE
     Route: 042
     Dates: start: 20130806
  35. IXABEPILONE [Suspect]
     Active Substance: IXABEPILONE
     Route: 042
     Dates: start: 20141212
  36. BEVACIZUMAB [Suspect]
     Active Substance: BEVACIZUMAB
     Route: 042
     Dates: start: 20120221
  37. BEVACIZUMAB [Suspect]
     Active Substance: BEVACIZUMAB
     Route: 042
     Dates: start: 20120925
  38. BEVACIZUMAB [Suspect]
     Active Substance: BEVACIZUMAB
     Route: 042
     Dates: start: 20130115
  39. BEVACIZUMAB [Suspect]
     Active Substance: BEVACIZUMAB
     Route: 042
     Dates: start: 20130207
  40. BEVACIZUMAB [Suspect]
     Active Substance: BEVACIZUMAB
     Route: 042
     Dates: start: 20150501
  41. IXABEPILONE [Suspect]
     Active Substance: IXABEPILONE
     Route: 042
     Dates: start: 20110926
  42. IXABEPILONE [Suspect]
     Active Substance: IXABEPILONE
     Route: 042
     Dates: start: 20120313
  43. IXABEPILONE [Suspect]
     Active Substance: IXABEPILONE
     Route: 042
     Dates: start: 20130312
  44. IXABEPILONE [Suspect]
     Active Substance: IXABEPILONE
     Route: 042
     Dates: start: 20130926
  45. IXABEPILONE [Suspect]
     Active Substance: IXABEPILONE
     Route: 042
     Dates: start: 20140214
  46. IXABEPILONE [Suspect]
     Active Substance: IXABEPILONE
     Route: 042
     Dates: start: 20140529
  47. BEVACIZUMAB [Suspect]
     Active Substance: BEVACIZUMAB
     Route: 042
     Dates: start: 20110926
  48. BEVACIZUMAB [Suspect]
     Active Substance: BEVACIZUMAB
     Route: 042
     Dates: start: 20111213
  49. BEVACIZUMAB [Suspect]
     Active Substance: BEVACIZUMAB
     Route: 042
     Dates: start: 20131127
  50. BEVACIZUMAB [Suspect]
     Active Substance: BEVACIZUMAB
     Route: 042
     Dates: start: 20140116
  51. BEVACIZUMAB [Suspect]
     Active Substance: BEVACIZUMAB
     Route: 042
     Dates: start: 20140327
  52. BEVACIZUMAB [Suspect]
     Active Substance: BEVACIZUMAB
     Route: 042
     Dates: start: 20150320
  53. IXABEPILONE [Suspect]
     Active Substance: IXABEPILONE
     Indication: ENDOMETRIAL CANCER
     Dosage: OVER 1 HOUR
     Route: 042
     Dates: start: 20110829
  54. IXABEPILONE [Suspect]
     Active Substance: IXABEPILONE
     Route: 042
     Dates: start: 20131017
  55. IXABEPILONE [Suspect]
     Active Substance: IXABEPILONE
     Route: 042
     Dates: start: 20140619
  56. IXABEPILONE [Suspect]
     Active Substance: IXABEPILONE
     Route: 042
     Dates: start: 20140717
  57. IXABEPILONE [Suspect]
     Active Substance: IXABEPILONE
     Route: 042
     Dates: start: 20141120
  58. IXABEPILONE [Suspect]
     Active Substance: IXABEPILONE
     Route: 042
     Dates: start: 20150202
  59. IXABEPILONE [Suspect]
     Active Substance: IXABEPILONE
     Route: 042
     Dates: start: 20150522, end: 20150522
  60. BEVACIZUMAB [Suspect]
     Active Substance: BEVACIZUMAB
     Route: 042
     Dates: start: 20120724
  61. BEVACIZUMAB [Suspect]
     Active Substance: BEVACIZUMAB
     Route: 042
     Dates: start: 20130402
  62. BEVACIZUMAB [Suspect]
     Active Substance: BEVACIZUMAB
     Route: 042
     Dates: start: 20130806
  63. BEVACIZUMAB [Suspect]
     Active Substance: BEVACIZUMAB
     Route: 042
     Dates: start: 20131107
  64. BEVACIZUMAB [Suspect]
     Active Substance: BEVACIZUMAB
     Route: 042
     Dates: start: 20140717
  65. BEVACIZUMAB [Suspect]
     Active Substance: BEVACIZUMAB
     Route: 042
     Dates: start: 20141023
  66. BEVACIZUMAB [Suspect]
     Active Substance: BEVACIZUMAB
     Route: 042
     Dates: start: 20141120
  67. IXABEPILONE [Suspect]
     Active Substance: IXABEPILONE
     Route: 042
     Dates: start: 20111121
  68. IXABEPILONE [Suspect]
     Active Substance: IXABEPILONE
     Route: 042
     Dates: start: 20120131
  69. IXABEPILONE [Suspect]
     Active Substance: IXABEPILONE
     Route: 042
     Dates: start: 20120221
  70. IXABEPILONE [Suspect]
     Active Substance: IXABEPILONE
     Route: 042
     Dates: start: 20130115
  71. IXABEPILONE [Suspect]
     Active Substance: IXABEPILONE
     Route: 042
     Dates: start: 20130501
  72. IXABEPILONE [Suspect]
     Active Substance: IXABEPILONE
     Route: 042
     Dates: start: 20131107
  73. IXABEPILONE [Suspect]
     Active Substance: IXABEPILONE
     Route: 042
     Dates: start: 20140417
  74. IXABEPILONE [Suspect]
     Active Substance: IXABEPILONE
     Route: 042
     Dates: start: 20140925
  75. IXABEPILONE [Suspect]
     Active Substance: IXABEPILONE
     Route: 042
     Dates: start: 20150130
  76. CARBOPLATIN. [Suspect]
     Active Substance: CARBOPLATIN
     Indication: ENDOMETRIAL CANCER
     Dosage: OVER 30 MINUTES
     Route: 042
  77. BEVACIZUMAB [Suspect]
     Active Substance: BEVACIZUMAB
     Indication: ENDOMETRIAL CANCER
     Dosage: OVER 30-90 MINUTES ON DAY 1
     Route: 042
     Dates: start: 20110829
  78. BEVACIZUMAB [Suspect]
     Active Substance: BEVACIZUMAB
     Route: 042
     Dates: start: 20120411
  79. BEVACIZUMAB [Suspect]
     Active Substance: BEVACIZUMAB
     Route: 042
     Dates: start: 20120814
  80. BEVACIZUMAB [Suspect]
     Active Substance: BEVACIZUMAB
     Route: 042
     Dates: start: 20121016
  81. BEVACIZUMAB [Suspect]
     Active Substance: BEVACIZUMAB
     Route: 042
     Dates: start: 20121218
  82. BEVACIZUMAB [Suspect]
     Active Substance: BEVACIZUMAB
     Route: 042
     Dates: start: 20130501
  83. BEVACIZUMAB [Suspect]
     Active Substance: BEVACIZUMAB
     Route: 042
     Dates: start: 20131017
  84. BEVACIZUMAB [Suspect]
     Active Substance: BEVACIZUMAB
     Route: 042
     Dates: start: 20140828
  85. BEVACIZUMAB [Suspect]
     Active Substance: BEVACIZUMAB
     Route: 042
     Dates: start: 20141120
  86. BEVACIZUMAB [Suspect]
     Active Substance: BEVACIZUMAB
     Route: 042
     Dates: start: 20150130
  87. IXABEPILONE [Suspect]
     Active Substance: IXABEPILONE
     Route: 042
     Dates: start: 20111024
  88. IXABEPILONE [Suspect]
     Active Substance: IXABEPILONE
     Route: 042
     Dates: start: 20120925
  89. IXABEPILONE [Suspect]
     Active Substance: IXABEPILONE
     Route: 042
     Dates: start: 20121106
  90. IXABEPILONE [Suspect]
     Active Substance: IXABEPILONE
     Route: 042
     Dates: start: 20130528
  91. IXABEPILONE [Suspect]
     Active Substance: IXABEPILONE
     Route: 042
     Dates: start: 20140508
  92. IXABEPILONE [Suspect]
     Active Substance: IXABEPILONE
     Route: 042
     Dates: start: 20140807
  93. IXABEPILONE [Suspect]
     Active Substance: IXABEPILONE
     Route: 042
     Dates: start: 20141023
  94. BEVACIZUMAB [Suspect]
     Active Substance: BEVACIZUMAB
     Route: 042
     Dates: start: 20120131
  95. BEVACIZUMAB [Suspect]
     Active Substance: BEVACIZUMAB
     Route: 042
     Dates: start: 20120522
  96. BEVACIZUMAB [Suspect]
     Active Substance: BEVACIZUMAB
     Route: 042
     Dates: start: 20121127
  97. BEVACIZUMAB [Suspect]
     Active Substance: BEVACIZUMAB
     Route: 042
     Dates: start: 20130905
  98. BEVACIZUMAB [Suspect]
     Active Substance: BEVACIZUMAB
     Route: 042
     Dates: start: 20131226
  99. BEVACIZUMAB [Suspect]
     Active Substance: BEVACIZUMAB
     Route: 042
     Dates: start: 20140417
  100. IXABEPILONE [Suspect]
     Active Substance: IXABEPILONE
     Route: 042
     Dates: start: 20120522
  101. IXABEPILONE [Suspect]
     Active Substance: IXABEPILONE
     Route: 042
     Dates: start: 20120814
  102. IXABEPILONE [Suspect]
     Active Substance: IXABEPILONE
     Route: 042
     Dates: start: 20120904
  103. IXABEPILONE [Suspect]
     Active Substance: IXABEPILONE
     Route: 042
     Dates: start: 20121127
  104. IXABEPILONE [Suspect]
     Active Substance: IXABEPILONE
     Route: 042
     Dates: start: 20121218
  105. IXABEPILONE [Suspect]
     Active Substance: IXABEPILONE
     Route: 042
     Dates: start: 20130402
  106. IXABEPILONE [Suspect]
     Active Substance: IXABEPILONE
     Route: 042
     Dates: start: 20131127
  107. IXABEPILONE [Suspect]
     Active Substance: IXABEPILONE
     Route: 042
     Dates: start: 20140116
  108. IXABEPILONE [Suspect]
     Active Substance: IXABEPILONE
     Route: 042
     Dates: start: 20140306
  109. IXABEPILONE [Suspect]
     Active Substance: IXABEPILONE
     Route: 042
     Dates: start: 20150320
  110. BEVACIZUMAB [Suspect]
     Active Substance: BEVACIZUMAB
     Route: 042
     Dates: start: 20111024
  111. BEVACIZUMAB [Suspect]
     Active Substance: BEVACIZUMAB
     Route: 042
     Dates: start: 20130312
  112. BEVACIZUMAB [Suspect]
     Active Substance: BEVACIZUMAB
     Route: 042
     Dates: start: 20140306
  113. BEVACIZUMAB [Suspect]
     Active Substance: BEVACIZUMAB
     Route: 042
     Dates: start: 20140619
  114. IXABEPILONE [Suspect]
     Active Substance: IXABEPILONE
     Route: 042
     Dates: start: 20131226
  115. IXABEPILONE [Suspect]
     Active Substance: IXABEPILONE
     Route: 042
     Dates: start: 20150501

REACTIONS (8)
  - Trismus [Unknown]
  - Anaemia [Unknown]
  - Neutrophil count decreased [Unknown]
  - Platelet count decreased [Unknown]
  - White blood cell count decreased [Unknown]
  - Acute coronary syndrome [Unknown]
  - Fatigue [Unknown]
  - Headache [Unknown]
